FAERS Safety Report 10079102 (Version 1)
Quarter: 2014Q2

REPORT INFORMATION
  Report Type: Spontaneous
  Country: US (occurrence: None)
  Receive Date: 20140411
  Receipt Date: 20140411
  Transmission Date: 20141212
  Serious: Yes (Disabling, Other)
  Sender: FDA-Public Use
  Company Number: None

PATIENT
  Age: 61 Year
  Sex: Female
  Weight: 112.95 kg

DRUGS (4)
  1. PHENYLEPHRINE HYDROCHLORIDE OPHTHALMIC [Suspect]
     Indication: EYE DISORDER
     Dosage: 2 APPLICATIONS OF DROPS IN EYES
     Dates: start: 20131213, end: 20131213
  2. LEVOTHYROXIN [Concomitant]
  3. SIMVASTATIN [Concomitant]
  4. BISOPROLOL/HTCTZ [Concomitant]

REACTIONS (7)
  - Headache [None]
  - Eye pain [None]
  - Ear pain [None]
  - Nausea [None]
  - Malaise [None]
  - Overdose [None]
  - Eye irritation [None]
